FAERS Safety Report 17835117 (Version 1)
Quarter: 2020Q2

REPORT INFORMATION
  Report Type: Spontaneous
  Country: FR (occurrence: FR)
  Receive Date: 20200528
  Receipt Date: 20200528
  Transmission Date: 20200714
  Serious: Yes (Other)
  Sender: FDA-Public Use
  Company Number: FR-TEVA-2020-FR-1240933

PATIENT
  Age: 19 Year
  Sex: Male
  Weight: 60 kg

DRUGS (4)
  1. CODEINE (SIROP DE) [Suspect]
     Active Substance: CODEINE
     Indication: SUBSTANCE USE
     Dosage: 75 ML
     Route: 048
     Dates: start: 20200507, end: 20200507
  2. PHENERGAN [Suspect]
     Active Substance: PROMETHAZINE HYDROCHLORIDE
     Indication: SUBSTANCE USE
     Dosage: 10 DOSAGE FORM
     Route: 048
     Dates: start: 20200507, end: 20200507
  3. ALPRAZOLAM. [Suspect]
     Active Substance: ALPRAZOLAM
     Indication: SUBSTANCE USE
     Dosage: 2 MG
     Route: 048
     Dates: start: 20200507, end: 20200507
  4. CANNABIS [Suspect]
     Active Substance: CANNABIS SATIVA SUBSP. INDICA TOP
     Indication: SUBSTANCE USE
     Dosage: 3 DOSAGE FORMS
     Route: 055
     Dates: start: 20200507, end: 20200507

REACTIONS (2)
  - Altered state of consciousness [Recovered/Resolved]
  - Drug abuse [Recovering/Resolving]

NARRATIVE: CASE EVENT DATE: 20200507
